FAERS Safety Report 4314163-X (Version None)
Quarter: 2004Q1

REPORT INFORMATION
  Report Type: 
  Country: None (occurrence: None)
  Receive Date: 20040308
  Receipt Date: 20040308
  Transmission Date: 20041129
  Serious: Yes (Other)
  Sender: FDA-Public Use
  Company Number: None

PATIENT
  Age: 15 Year
  Sex: Female
  Weight: 58.9676 kg

DRUGS (3)
  1. CORICIDIN COUGH AND COLD TABLETS [Suspect]
     Indication: DRUG USE FOR UNKNOWN INDICATION
     Dosage: 4-6 TABLETS ORAL
     Route: 048
  2. ETHANOL [Concomitant]
  3. ZOLOFT [Concomitant]

REACTIONS (1)
  - DRUG ABUSER [None]
